FAERS Safety Report 8389844-1 (Version None)
Quarter: 2012Q2

REPORT INFORMATION
  Report Type: 
  Country: None (occurrence: None)
  Receive Date: 20120522
  Receipt Date: 20120509
  Transmission Date: 20120825
  Serious: Yes (Hospitalization)
  Sender: FDA-Public Use
  Company Number: ACO_28512_2011

PATIENT
  Age: 62 Year
  Sex: Male

DRUGS (1)
  1. FAMPRIDINE-SR (FAMPRIDINE) TABLET [Suspect]
     Indication: MULTIPLE SCLEROSIS
     Dosage: 10 MG, BID, ORAL
     Route: 048
     Dates: start: 20110622

REACTIONS (29)
  - DIET REFUSAL [None]
  - AGGRESSION [None]
  - SUBCUTANEOUS EMPHYSEMA [None]
  - RED BLOOD CELLS URINE POSITIVE [None]
  - CARPAL TUNNEL SYNDROME [None]
  - RIB FRACTURE [None]
  - CONFUSIONAL STATE [None]
  - FRACTURE DISPLACEMENT [None]
  - GLUCOSE URINE PRESENT [None]
  - URINE LEUKOCYTE ESTERASE POSITIVE [None]
  - UROBILINOGEN URINE INCREASED [None]
  - BLOOD CHLORIDE DECREASED [None]
  - EOSINOPHIL COUNT INCREASED [None]
  - NEUTROPHIL COUNT INCREASED [None]
  - PROTEIN URINE PRESENT [None]
  - PNEUMOTHORAX [None]
  - PLATELET COUNT INCREASED [None]
  - PLEURAL EFFUSION [None]
  - MULTIPLE SCLEROSIS RELAPSE [None]
  - URINARY TRACT INFECTION [None]
  - LYMPHOCYTE COUNT DECREASED [None]
  - HAEMATOCRIT DECREASED [None]
  - ATELECTASIS [None]
  - BLOOD UREA INCREASED [None]
  - BLOOD SODIUM DECREASED [None]
  - FALL [None]
  - AGITATION [None]
  - WEIGHT DECREASED [None]
  - URINE KETONE BODY PRESENT [None]
